FAERS Safety Report 7186906-1 (Version None)
Quarter: 2010Q4

REPORT INFORMATION
  Report Type: 
  Country: None (occurrence: None)
  Receive Date: 20101222
  Receipt Date: 20101210
  Transmission Date: 20110411
  Serious: Yes (Death, Hospitalization, Other)
  Sender: FDA-Public Use
  Company Number: SK-ELI_LILLY_AND_COMPANY-SK201012003036

PATIENT
  Age: 81 Year
  Sex: Female

DRUGS (4)
  1. FORTEO [Suspect]
     Indication: OSTEOPOROSIS POSTMENOPAUSAL
     Dosage: 20 UG, DAILY (1/D)
     Route: 058
     Dates: start: 20100701
  2. VALSARTAN [Concomitant]
     Dosage: UNK, UNKNOWN
     Route: 048
  3. AMLODIPINE [Concomitant]
     Dosage: UNK, UNKNOWN
     Route: 048
  4. ACETYLSALICYLIC ACID [Concomitant]
     Dosage: UNK, UNKNOWN
     Route: 048

REACTIONS (3)
  - DEATH [None]
  - FEMORAL NECK FRACTURE [None]
  - VASCULAR INSUFFICIENCY [None]
